FAERS Safety Report 10978309 (Version 1)
Quarter: 2015Q2

REPORT INFORMATION
  Report Type: Spontaneous
  Country: US (occurrence: None)
  Receive Date: 20150401
  Receipt Date: 20150401
  Transmission Date: 20150821
  Serious: Yes (Hospitalization)
  Sender: FDA-Public Use
  Company Number: None

PATIENT
  Age: 43 Year
  Sex: Male
  Weight: 52.62 kg

DRUGS (7)
  1. SIMEPREVIR [Suspect]
     Active Substance: SIMEPREVIR
     Indication: HEPATITIS C
     Dosage: 150
     Route: 048
     Dates: start: 20140414, end: 20140804
  2. COLACE [Concomitant]
     Active Substance: DOCUSATE SODIUM
  3. OXYCODONE [Concomitant]
     Active Substance: OXYCODONE
  4. LEVOTHYROXINE [Concomitant]
     Active Substance: LEVOTHYROXINE
  5. CYCLOSPORINE. [Concomitant]
     Active Substance: CYCLOSPORINE
  6. SOVALDI [Suspect]
     Active Substance: SOFOSBUVIR
     Indication: HEPATITIS C
     Dosage: 400
     Route: 048
     Dates: start: 20140414, end: 20140804
  7. DEXAMETHASONE. [Concomitant]
     Active Substance: DEXAMETHASONE

REACTIONS (5)
  - Vomiting [None]
  - Decreased appetite [None]
  - Abdominal pain [None]
  - Nausea [None]
  - Hyperkalaemia [None]

NARRATIVE: CASE EVENT DATE: 20140502
